FAERS Safety Report 20199199 (Version 1)
Quarter: 2021Q4

REPORT INFORMATION
  Report Type: Spontaneous
  Country: US (occurrence: US)
  Receive Date: 20211217
  Receipt Date: 20211217
  Transmission Date: 20220304
  Serious: Yes (Hospitalization)
  Sender: FDA-Public Use
  Company Number: US-NOVARTISPH-NVSC2021US285693

PATIENT
  Age: 61 Year
  Sex: Female

DRUGS (2)
  1. RANITIDINE [Suspect]
     Active Substance: RANITIDINE
     Indication: Spinal operation
     Dosage: 150 MG, BID
     Route: 048
     Dates: start: 199801, end: 201901
  2. RANITIDINE [Suspect]
     Active Substance: RANITIDINE
     Indication: Spinal operation
     Dosage: 150 MG, BID
     Route: 048
     Dates: start: 199801, end: 201901

REACTIONS (4)
  - Gastric cancer [Unknown]
  - Hepatic cancer [Unknown]
  - Breast cancer stage I [Unknown]
  - Product use in unapproved indication [Unknown]

NARRATIVE: CASE EVENT DATE: 20161101
